FAERS Safety Report 12400270 (Version 1)
Quarter: 2016Q2

REPORT INFORMATION
  Report Type: Spontaneous
  Country: US (occurrence: None)
  Receive Date: 20160524
  Receipt Date: 20160524
  Transmission Date: 20160815
  Serious: Yes (Disabling)
  Sender: FDA-Public Use
  Company Number: None

PATIENT
  Age: 33 Year
  Sex: Female

DRUGS (1)
  1. DIFLUCAN [Suspect]
     Active Substance: FLUCONAZOLE
     Indication: FUNGAL INFECTION
     Route: 048
     Dates: start: 20091001, end: 20100801

REACTIONS (7)
  - Pain [None]
  - Mucosal inflammation [None]
  - Staphylococcal infection [None]
  - Crying [None]
  - Gait disturbance [None]
  - Asthenia [None]
  - Skin ulcer [None]
